FAERS Safety Report 12291051 (Version 1)
Quarter: 2016Q2

REPORT INFORMATION
  Report Type: Spontaneous
  Country: US (occurrence: US)
  Receive Date: 20160421
  Receipt Date: 20160421
  Transmission Date: 20160815
  Serious: Yes (Hospitalization)
  Sender: FDA-Public Use
  Company Number: US-DEPOMED, INC.-US-2016DEP009359

PATIENT
  Age: 8 Month
  Sex: Female

DRUGS (1)
  1. FENTANYL CITRATE. [Suspect]
     Active Substance: FENTANYL CITRATE
     Indication: PRODUCT USED FOR UNKNOWN INDICATION
     Dosage: 12.375 MG, UNK
     Route: 048

REACTIONS (7)
  - Hypotonia [Unknown]
  - Apnoea [Unknown]
  - Cyanosis [Unknown]
  - Miosis [Unknown]
  - Dyspnoea [Unknown]
  - Toxicity to various agents [Unknown]
  - Accidental exposure to product [Unknown]
